FAERS Safety Report 10331895 (Version 1)
Quarter: 2014Q3

REPORT INFORMATION
  Report Type: Report from Study
  Country: CO (occurrence: CO)
  Receive Date: 20140722
  Receipt Date: 20140722
  Transmission Date: 20150326
  Serious: Yes (Hospitalization)
  Sender: FDA-Public Use
  Company Number: CO-BRISTOL-MYERS SQUIBB COMPANY-21204128

PATIENT
  Age: 35 Year
  Sex: Female

DRUGS (1)
  1. YERVOY [Suspect]
     Active Substance: IPILIMUMAB
     Indication: METASTATIC MALIGNANT MELANOMA
     Dosage: 4TH CYCLE : 21-FEB-2014?RESTARTED:ON02-APR AND 16-MAY?150MG EVERY 21 DAYS
     Route: 042
     Dates: start: 20131105

REACTIONS (2)
  - Cholelithiasis [Unknown]
  - Off label use [Unknown]
